FAERS Safety Report 18779964 (Version 3)
Quarter: 2021Q1

REPORT INFORMATION
  Report Type: Spontaneous
  Country: BR (occurrence: BR)
  Receive Date: 20210125
  Receipt Date: 20210224
  Transmission Date: 20210419
  Serious: Yes (Other)
  Sender: FDA-Public Use
  Company Number: BR-ASTELLAS-2021US000747

PATIENT
  Age: 77 Year
  Sex: Male

DRUGS (5)
  1. ACETYLSALICYLIC ACID FOR CHILDREN [Concomitant]
     Indication: PROPHYLAXIS
     Dosage: UNK UNK, ONCE DAILY
     Route: 048
     Dates: start: 1991
  2. DAFLON [DIOSMIN] [Concomitant]
     Active Substance: DIOSMIN
     Indication: CARDIOVASCULAR DISORDER
     Dosage: UNK UNK, ONCE DAILY
     Route: 048
  3. PENTOXIFILINA [Concomitant]
     Active Substance: PENTOXIFYLLINE
     Indication: CARDIOVASCULAR DISORDER
     Dosage: UNK UNK, ONCE DAILY
     Route: 048
  4. VESICARE [Suspect]
     Active Substance: SOLIFENACIN SUCCINATE
     Indication: BLADDER DISORDER
     Route: 048
     Dates: start: 20210103
  5. BENICAR HCT [Concomitant]
     Active Substance: HYDROCHLOROTHIAZIDE\OLMESARTAN MEDOXOMIL
     Indication: HYPERTENSION
     Dosage: 12.25 MG, ONCE DAILY (MORNING)
     Route: 048

REACTIONS (4)
  - Loss of consciousness [Recovered/Resolved]
  - Pyrexia [Recovered/Resolved]
  - Rash macular [Recovering/Resolving]
  - Condition aggravated [Recovering/Resolving]

NARRATIVE: CASE EVENT DATE: 20210105
